FAERS Safety Report 9596320 (Version 2)
Quarter: 2013Q4

REPORT INFORMATION
  Report Type: Spontaneous
  Country: AU (occurrence: AU)
  Receive Date: 20131004
  Receipt Date: 20131010
  Transmission Date: 20140711
  Serious: No
  Sender: FDA-Public Use
  Company Number: AU-JNJFOC-20131001152

PATIENT
  Sex: Female

DRUGS (1)
  1. DUROGESIC [Suspect]
     Indication: PAIN
     Route: 062

REACTIONS (3)
  - Product quality issue [Not Recovered/Not Resolved]
  - Inadequate analgesia [Not Recovered/Not Resolved]
  - Wrong technique in drug usage process [Unknown]
